FAERS Safety Report 8089922 (Version 9)
Quarter: 2014Q2

REPORT INFORMATION
  Report Type: Spontaneous
  Country: US (occurrence: US)
  Receive Date: 20110815
  Receipt Date: 20140411
  Transmission Date: 20141212
  Serious: Yes (Hospitalization, Other)
  Sender: FDA-Public Use
  Company Number: US-ROCHE-796046

PATIENT
  Age: 22 Year
  Sex: Female
  Weight: 55.84 kg

DRUGS (2)
  1. ACCUTANE [Suspect]
     Indication: ACNE CYSTIC
     Route: 065
     Dates: start: 19930312, end: 19930806
  2. ORTHO-NOVUM [Concomitant]
     Indication: CONTRACEPTION

REACTIONS (11)
  - Colitis ulcerative [Unknown]
  - Inflammatory bowel disease [Unknown]
  - Depression [Unknown]
  - Injury [Unknown]
  - Suicidal ideation [Unknown]
  - Pouchitis [Unknown]
  - Arthritis [Unknown]
  - Lip dry [Unknown]
  - Blood triglycerides increased [Unknown]
  - Dry skin [Unknown]
  - Dry eye [Unknown]
